FAERS Safety Report 6857169-9 (Version None)
Quarter: 2010Q3

REPORT INFORMATION
  Report Type: 
  Country: None (occurrence: None)
  Receive Date: 20100719
  Receipt Date: 20100306
  Transmission Date: 20110219
  Serious: No
  Sender: FDA-Public Use
  Company Number: US-KINGPHARMUSA00001-K201000283

PATIENT
  Sex: Female
  Weight: 113.38 kg

DRUGS (2)
  1. LEVOXYL [Suspect]
     Indication: HYPOTHYROIDISM
     Dosage: 100 MCG, QD
     Route: 048
     Dates: start: 20090101, end: 20100201
  2. IRON [Concomitant]
     Indication: ANAEMIA
     Dosage: 65 MG, QD
     Route: 048

REACTIONS (3)
  - BURNING SENSATION [None]
  - RASH [None]
  - SENSORY DISTURBANCE [None]
